FAERS Safety Report 14204846 (Version 1)
Quarter: 2017Q4

REPORT INFORMATION
  Report Type: Spontaneous
  Country: US (occurrence: US)
  Receive Date: 20171118
  Receipt Date: 20171118
  Transmission Date: 20180321
  Serious: Yes (Disabling)
  Sender: FDA-Public Use
  Company Number: None

PATIENT
  Age: 41 Year
  Sex: Female
  Weight: 49.5 kg

DRUGS (2)
  1. MONTELUKAST [Suspect]
     Active Substance: MONTELUKAST SODIUM
     Indication: ASTHMA
     Dosage: ?          QUANTITY:1 CAPSULE(S);?DAILY ORAL
     Route: 048
  2. MONTELUKAST [Suspect]
     Active Substance: MONTELUKAST SODIUM
     Indication: MAST CELL ACTIVATION SYNDROME
     Dosage: ?          QUANTITY:1 CAPSULE(S);?DAILY ORAL
     Route: 048

REACTIONS (7)
  - Feeling abnormal [None]
  - Liver function test increased [None]
  - Emotional disorder [None]
  - Withdrawal syndrome [None]
  - Nausea [None]
  - Oedema [None]
  - Fatigue [None]

NARRATIVE: CASE EVENT DATE: 20170901
